FAERS Safety Report 23487019 (Version 1)
Quarter: 2024Q1

REPORT INFORMATION
  Report Type: Spontaneous
  Country: CN (occurrence: CN)
  Receive Date: 20240206
  Receipt Date: 20240206
  Transmission Date: 20240410
  Serious: Yes (Life-Threatening, Hospitalization, Other)
  Sender: FDA-Public Use
  Company Number: CN-BAYER-2024A019939

PATIENT
  Age: 61 Year
  Sex: Female

DRUGS (1)
  1. ULTRAVIST [Suspect]
     Active Substance: IOPROMIDE
     Indication: Computerised tomogram head
     Dosage: 50 ML, ONCE
     Route: 042
     Dates: start: 20240125, end: 20240125

REACTIONS (18)
  - Shock [Recovering/Resolving]
  - Coma [Recovering/Resolving]
  - Unresponsive to stimuli [None]
  - Electrocardiogram ST segment elevation [None]
  - Apnoea [Recovered/Resolved]
  - Dyspnoea [None]
  - Feeling hot [None]
  - Hypoaesthesia [None]
  - Erythema [None]
  - Dysgeusia [None]
  - Heart rate increased [Recovered/Resolved]
  - Mouth breathing [None]
  - Glossoptosis [None]
  - Mydriasis [None]
  - Pupillary reflex impaired [None]
  - Hypotonia [None]
  - Blood pressure immeasurable [Recovered/Resolved]
  - Sinus arrhythmia [None]

NARRATIVE: CASE EVENT DATE: 20240125
